APPROVED DRUG PRODUCT: VIMPAT
Active Ingredient: LACOSAMIDE
Strength: 10MG/ML
Dosage Form/Route: SOLUTION;ORAL
Application: N022255 | Product #001 | TE Code: AA
Applicant: UCB INC
Approved: Apr 20, 2010 | RLD: Yes | RS: Yes | Type: RX

EXCLUSIVITY:
Code: D-188 | Date: Apr 28, 2026